FAERS Safety Report 25250549 (Version 1)
Quarter: 2025Q2

REPORT INFORMATION
  Report Type: Spontaneous
  Country: US (occurrence: US)
  Receive Date: 20250429
  Receipt Date: 20250429
  Transmission Date: 20250717
  Serious: Yes (Death)
  Sender: APOTEX
  Company Number: US-APOTEX-2025AP005565

PATIENT
  Sex: Female

DRUGS (1)
  1. CITALOPRAM [Suspect]
     Active Substance: CITALOPRAM
     Indication: Antidepressant therapy
     Route: 065

REACTIONS (1)
  - Accidental overdose [Fatal]
